FAERS Safety Report 7659876-7 (Version None)
Quarter: 2011Q3

REPORT INFORMATION
  Report Type: 
  Country: None (occurrence: None)
  Receive Date: 20110805
  Receipt Date: 20110525
  Transmission Date: 20111222
  Serious: No
  Sender: FDA-Public Use
  Company Number: US-ABBOTT-11P-163-0728698-00

PATIENT
  Sex: Male
  Weight: 89.892 kg

DRUGS (3)
  1. ZOLOFT [Concomitant]
     Indication: DEPRESSION
  2. DEPAKOTE ER [Suspect]
     Indication: AFFECTIVE DISORDER
  3. DEPAKOTE ER [Suspect]
     Indication: BIPOLAR DISORDER
     Dates: start: 20040101

REACTIONS (2)
  - RECTAL HAEMORRHAGE [None]
  - MEDICATION RESIDUE [None]
